FAERS Safety Report 10152789 (Version 1)
Quarter: 2014Q2

REPORT INFORMATION
  Report Type: Spontaneous
  Country: US (occurrence: US)
  Receive Date: 20140505
  Receipt Date: 20140505
  Transmission Date: 20141212
  Serious: Yes (Other)
  Sender: FDA-Public Use
  Company Number: US-PFIZER INC-2014119300

PATIENT
  Age: 90 Year
  Sex: Male
  Weight: 81.6 kg

DRUGS (1)
  1. TOVIAZ [Suspect]
     Indication: HYPERTONIC BLADDER
     Dosage: 6 MG, DAILY
     Route: 048
     Dates: end: 20140425

REACTIONS (2)
  - Fall [Unknown]
  - Dizziness [Unknown]
